FAERS Safety Report 5820014-4 (Version None)
Quarter: 2008Q3

REPORT INFORMATION
  Report Type: 
  Country: None (occurrence: None)
  Receive Date: 20080718
  Receipt Date: 20080718
  Transmission Date: 20090109
  Serious: Yes (Other)
  Sender: FDA-Public Use
  Company Number: None

PATIENT
  Age: 41 Year
  Sex: Female
  Weight: 77.1115 kg

DRUGS (2)
  1. YASMIN [Suspect]
     Indication: CONTRACEPTION
     Dates: start: 20070901, end: 20080701
  2. YASMIN [Suspect]
     Indication: MENORRHAGIA
     Dates: start: 20070901, end: 20080701

REACTIONS (3)
  - AGGRESSION [None]
  - IRRITABILITY [None]
  - MUSCLE SPASMS [None]
